FAERS Safety Report 9373164 (Version 1)
Quarter: 2013Q2

REPORT INFORMATION
  Report Type: Report from Study
  Country: US (occurrence: US)
  Receive Date: 20130627
  Receipt Date: 20130627
  Transmission Date: 20140414
  Serious: Yes (Hospitalization, Other)
  Sender: FDA-Public Use
  Company Number: US-ROCHE-1239102

PATIENT
  Age: 69 Year
  Sex: Male

DRUGS (2)
  1. ERIVEDGE [Suspect]
     Indication: BASAL CELL CARCINOMA
     Route: 048
     Dates: start: 2011
  2. COUMADIN [Concomitant]
     Dosage: TREATMENT FOR 90 DAYS
     Route: 065

REACTIONS (4)
  - Basal cell carcinoma [Not Recovered/Not Resolved]
  - Knee arthroplasty [Unknown]
  - Wound infection bacterial [Unknown]
  - Thrombosis [Unknown]
